FAERS Safety Report 12906833 (Version 2)
Quarter: 2017Q3

REPORT INFORMATION
  Report Type: Spontaneous
  Country: JP (occurrence: JP)
  Receive Date: 20161103
  Receipt Date: 20170906
  Transmission Date: 20171127
  Serious: Yes (Other)
  Sender: FDA-Public Use
  Company Number: JP-BAYER-2015-178512

PATIENT
  Age: 63 Year
  Sex: Female
  Weight: 59.41 kg

DRUGS (9)
  1. STIVARGA [Suspect]
     Active Substance: REGORAFENIB
     Indication: RECTAL CANCER
     Dosage: 160 MG, QD
     Route: 048
     Dates: start: 20150403, end: 20150415
  2. ACETAMINOPHEN. [Concomitant]
     Active Substance: ACETAMINOPHEN
     Indication: CANCER PAIN
  3. OXYCODONE [Concomitant]
     Active Substance: OXYCODONE
  4. STIVARGA [Suspect]
     Active Substance: REGORAFENIB
     Indication: RECTAL CANCER
     Dosage: 120 MG, QD
     Route: 048
     Dates: start: 20150425
  5. HIRUDOID [Concomitant]
     Active Substance: GLYCOSAMINOGLYCANS
     Indication: DRUG TOXICITY PROPHYLAXIS
     Dosage: UNK
     Route: 061
     Dates: start: 20140403
  6. TRAMADOL HYDROCHLORIDE. [Concomitant]
     Active Substance: TRAMADOL HYDROCHLORIDE
     Indication: CANCER PAIN
     Dosage: DAILY DOSE 200 MG
  7. KERATINAMIN [Concomitant]
     Active Substance: UREA
     Indication: DRUG TOXICITY PROPHYLAXIS
     Dosage: UNK UNK, QS
     Route: 061
     Dates: start: 20140403
  8. ACETAMINOPHEN. [Concomitant]
     Active Substance: ACETAMINOPHEN
     Indication: METASTASES TO OVARY
     Dosage: DAILY DOSE 2400 MG
  9. TRAMADOL HYDROCHLORIDE. [Concomitant]
     Active Substance: TRAMADOL HYDROCHLORIDE
     Indication: METASTASES TO OVARY
     Dosage: DAILY DOSE 100 MG

REACTIONS (11)
  - Metastases to lung [Recovering/Resolving]
  - Platelet count decreased [Recovered/Resolved]
  - Metastases to kidney [None]
  - Rash [Recovering/Resolving]
  - Carcinoembryonic antigen increased [None]
  - Tumour marker increased [None]
  - Blood lactate dehydrogenase increased [None]
  - Blood pressure increased [None]
  - Abdominal pain [Recovering/Resolving]
  - Palmar-plantar erythrodysaesthesia syndrome [Recovering/Resolving]
  - Blood thyroid stimulating hormone increased [None]

NARRATIVE: CASE EVENT DATE: 201504
